FAERS Safety Report 7969302-6 (Version None)
Quarter: 2011Q4

REPORT INFORMATION
  Report Type: 
  Country: None (occurrence: None)
  Receive Date: 20111209
  Receipt Date: 20111202
  Transmission Date: 20120403
  Serious: Yes (Hospitalization)
  Sender: FDA-Public Use
  Company Number: US-UCBSA-046934

PATIENT
  Age: 83 Year
  Sex: Female
  Weight: 49.9 kg

DRUGS (8)
  1. CERTOLIZUMAB PEGOL [Suspect]
     Indication: RHEUMATOID ARTHRITIS
     Dosage: DOSE:400 MG
     Route: 058
     Dates: start: 20110628, end: 20110726
  2. XANAX [Concomitant]
     Indication: ANXIETY
     Dosage: DOSE PER INTAKE:0.5 MG; AS NEEDED
     Route: 048
     Dates: start: 20010101
  3. RELAFEN [Concomitant]
     Indication: RHEUMATOID ARTHRITIS
     Route: 048
     Dates: start: 20050101
  4. CERTOLIZUMAB PEGOL [Suspect]
     Dosage: DOSE:200 MG
     Route: 058
     Dates: start: 20110810, end: 20111116
  5. FOLIC ACID [Concomitant]
     Indication: SUPPLEMENTATION THERAPY
     Route: 048
     Dates: start: 20020101
  6. METHOTREXATE [Concomitant]
     Indication: RHEUMATOID ARTHRITIS
     Route: 048
     Dates: start: 20110210
  7. LISINOPRIL [Concomitant]
     Indication: HYPERTENSION
     Route: 048
     Dates: start: 20090101
  8. FLUOXETINE [Concomitant]
     Indication: DEPRESSION
     Route: 048
     Dates: start: 20100401

REACTIONS (1)
  - PNEUMONIA [None]
